FAERS Safety Report 15467859 (Version 1)
Quarter: 2018Q4

REPORT INFORMATION
  Report Type: Spontaneous
  Country: FR (occurrence: FR)
  Receive Date: 20181005
  Receipt Date: 20181005
  Transmission Date: 20190204
  Serious: Yes (Other)
  Sender: FDA-Public Use
  Company Number: FR-AUROBINDO-AUR-APL-2018-049146

PATIENT
  Age: 73 Year
  Sex: Male
  Weight: 72 kg

DRUGS (8)
  1. ESOMEPRAZOLE. [Suspect]
     Active Substance: ESOMEPRAZOLE MAGNESIUM
     Indication: GASTRIC ULCER
     Dosage: UNK
     Route: 048
     Dates: start: 201509
  2. SILODYX [Suspect]
     Active Substance: SILODOSIN
     Indication: PROSTATOMEGALY
     Dosage: UNK
     Route: 048
     Dates: start: 2012
  3. FINASTERIDE. [Suspect]
     Active Substance: FINASTERIDE
     Indication: PROSTATOMEGALY
     Dosage: UNK
     Route: 048
     Dates: start: 2012
  4. SERETIDE [Suspect]
     Active Substance: FLUTICASONE PROPIONATE\SALMETEROL XINAFOATE
     Indication: CHRONIC OBSTRUCTIVE PULMONARY DISEASE
     Dosage: UNK
     Route: 055
     Dates: start: 2013
  5. PREVISCAN                          /00789001/ [Suspect]
     Active Substance: FLUINDIONE
     Indication: ATRIAL FIBRILLATION
     Dosage: UNK
     Route: 048
     Dates: start: 2013
  6. HYDREA [Suspect]
     Active Substance: HYDROXYUREA
     Indication: THROMBOCYTOSIS
     Dosage: 2 DOSAGE FORM, ONCE A DAY
     Route: 048
     Dates: start: 201511
  7. PROPRANOLOL [Suspect]
     Active Substance: PROPRANOLOL HYDROCHLORIDE
     Indication: VARICES OESOPHAGEAL
     Dosage: 80 MILLIGRAM, ONCE A DAY
     Route: 048
     Dates: start: 201509
  8. SPIRIVA [Suspect]
     Active Substance: TIOTROPIUM BROMIDE MONOHYDRATE
     Indication: CHRONIC OBSTRUCTIVE PULMONARY DISEASE
     Dosage: UNK
     Route: 055
     Dates: start: 2013

REACTIONS (1)
  - Granulomatous rosacea [Recovering/Resolving]

NARRATIVE: CASE EVENT DATE: 201711
